FAERS Safety Report 8317650-2 (Version None)
Quarter: 2012Q2

REPORT INFORMATION
  Report Type: 
  Country: None (occurrence: None)
  Receive Date: 20120427
  Receipt Date: 20090626
  Transmission Date: 20120825
  Serious: No
  Sender: FDA-Public Use
  Company Number: US-TEVA-2009007943

PATIENT
  Sex: Male

DRUGS (2)
  1. NUVIGIL [Suspect]
     Indication: SOMNOLENCE
     Dosage: 150 MILLIGRAM;
     Route: 048
     Dates: start: 20090601
  2. DEPAKOTE [Concomitant]
     Indication: AFFECTIVE DISORDER
     Dates: start: 20070101

REACTIONS (2)
  - FATIGUE [None]
  - SENSATION OF HEAVINESS [None]
